FAERS Safety Report 7700068-0 (Version None)
Quarter: 2011Q3

REPORT INFORMATION
  Report Type: 
  Country: None (occurrence: None)
  Receive Date: 20110822
  Receipt Date: 20110811
  Transmission Date: 20111222
  Serious: Yes (Death, Hospitalization)
  Sender: FDA-Public Use
  Company Number: JP-GENZYME-THYM-1002513

PATIENT
  Sex: Male
  Weight: 45 kg

DRUGS (9)
  1. VALACYCLOVIR HYDROCHLORIDE [Concomitant]
     Indication: ANTIVIRAL PROPHYLAXIS
     Dosage: UNK
     Route: 065
     Dates: start: 20110525, end: 20110528
  2. SULFAMETHOPRIM [Concomitant]
     Dosage: UNK
     Route: 065
     Dates: start: 20110530, end: 20110531
  3. THYMOGLOBULIN [Suspect]
     Dosage: 150 MG, QD
     Route: 042
     Dates: start: 20110524, end: 20110527
  4. GARENOXACIN MESILATE HYDRATE [Concomitant]
     Indication: ANTIBIOTIC PROPHYLAXIS
     Dosage: UNK
     Route: 065
     Dates: start: 20110525, end: 20110528
  5. METHYLPREDNISOLONE SODIUM SUCCINATE [Concomitant]
     Indication: PREMEDICATION
     Dosage: 125 MG, QD
     Route: 065
     Dates: start: 20110524, end: 20110527
  6. CYCLOSPORINE [Concomitant]
     Indication: APLASTIC ANAEMIA
     Dosage: UNK
     Route: 065
     Dates: start: 20110328, end: 20110528
  7. LENOGRASTIM [Concomitant]
     Indication: INFECTION PROPHYLAXIS
     Dosage: UNK
     Route: 065
     Dates: start: 20110525, end: 20110528
  8. SULFAMETHOPRIM [Concomitant]
     Indication: PROPHYLAXIS
     Dosage: UNK
     Route: 065
     Dates: start: 20110523, end: 20110528
  9. ITRACONAZOLE [Concomitant]
     Indication: ANTIFUNGAL PROPHYLAXIS
     Dosage: UNK
     Route: 065
     Dates: start: 20110525, end: 20110528

REACTIONS (2)
  - PULMONARY HAEMORRHAGE [None]
  - ENTEROCOCCAL SEPSIS [None]
